FAERS Safety Report 4732294-7 (Version None)
Quarter: 2005Q3

REPORT INFORMATION
  Report Type: 
  Country: None (occurrence: None)
  Receive Date: 20050726
  Receipt Date: 20050118
  Transmission Date: 20060218
  Serious: Yes (Other)
  Sender: FDA-Public Use
  Company Number: 05LEB0051

PATIENT
  Sex: Male

DRUGS (4)
  1. AGGRASTAT [Suspect]
     Dates: start: 20031102, end: 20031104
  2. HEPARIN [Concomitant]
  3. PLAVIX [Concomitant]
  4. ASPIRIN [Concomitant]

REACTIONS (1)
  - HAEMATURIA [None]
